FAERS Safety Report 15662222 (Version 1)
Quarter: 2018Q4

REPORT INFORMATION
  Report Type: Spontaneous
  Country: US (occurrence: US)
  Receive Date: 20181127
  Receipt Date: 20181127
  Transmission Date: 20190205
  Serious: Yes (Other)
  Sender: FDA-Public Use
  Company Number: US-SA-2018SA320156

PATIENT
  Age: 58 Year
  Sex: Female

DRUGS (1)
  1. LANTUS SOLOSTAR [Suspect]
     Active Substance: INSULIN GLARGINE
     Indication: DIABETES MELLITUS
     Dosage: 70 U, QD
     Route: 065
     Dates: start: 2004

REACTIONS (4)
  - Wheelchair user [Unknown]
  - Device operational issue [Unknown]
  - Hypokinesia [Unknown]
  - Visual impairment [Unknown]
